FAERS Safety Report 16686504 (Version 1)
Quarter: 2019Q3

REPORT INFORMATION
  Report Type: Spontaneous
  Country: CA (occurrence: CA)
  Receive Date: 20190809
  Receipt Date: 20190809
  Transmission Date: 20191004
  Serious: Yes (Hospitalization, Other)
  Sender: FDA-Public Use
  Company Number: CA-009507513-1908CAN003167

PATIENT
  Sex: Female

DRUGS (2)
  1. MORPHINE SULFATE. [Suspect]
     Active Substance: MORPHINE SULFATE
     Indication: PRODUCT USED FOR UNKNOWN INDICATION
     Dosage: STRENGTH 1MG/ML; DOSAGE FORM: SOLUTION INTRAVENOUS
     Route: 065
  2. SINGULAIR [Suspect]
     Active Substance: MONTELUKAST SODIUM
     Indication: ASTHMA
     Dosage: 10 MILLIGRAM
     Route: 048

REACTIONS (5)
  - Accident [Recovering/Resolving]
  - Appendicitis perforated [Recovering/Resolving]
  - Pyrexia [Recovering/Resolving]
  - Ligament sprain [Recovering/Resolving]
  - Malaise [Recovering/Resolving]
